FAERS Safety Report 16415474 (Version 1)
Quarter: 2019Q3

REPORT INFORMATION
  Report Type: Spontaneous
  Country: US (occurrence: US)
  Receive Date: 20190610
  Receipt Date: 20190610
  Transmission Date: 20191004
  Serious: Yes (Disabling, Other)
  Sender: FDA-Public Use
  Company Number: None

PATIENT
  Age: 72 Year
  Sex: Male
  Weight: 101.25 kg

DRUGS (1)
  1. LOSARTAN POTASSIUM. [Suspect]
     Active Substance: LOSARTAN POTASSIUM

REACTIONS (12)
  - Joint range of motion decreased [None]
  - Intervertebral disc degeneration [None]
  - Intervertebral disc protrusion [None]
  - Spondylolisthesis [None]
  - Intervertebral disc space narrowing [None]
  - Osteosclerosis [None]
  - Vertebral osteophyte [None]
  - Facet joint syndrome [None]
  - Product quality issue [None]
  - Muscle disorder [None]
  - Haemangioma of bone [None]
  - Arthropathy [None]

NARRATIVE: CASE EVENT DATE: 20180801
